FAERS Safety Report 10271188 (Version 1)
Quarter: 2014Q3

REPORT INFORMATION
  Report Type: Spontaneous
  Country: US (occurrence: US)
  Receive Date: 20140701
  Receipt Date: 20140701
  Transmission Date: 20150326
  Serious: Yes (Hospitalization)
  Sender: FDA-Public Use
  Company Number: US-B.I. PHARMACEUTICALS,INC./RIDGEFIELD-2014-BI-28888BP

PATIENT
  Sex: Male
  Weight: 70 kg

DRUGS (14)
  1. NEBULIZER [Concomitant]
     Active Substance: UNSPECIFIED INGREDIENT
     Indication: CARDIAC DISORDER
     Dosage: FORMULATION: INHALATION AEROSOL
     Route: 055
     Dates: start: 2013
  2. DILTIAZEM [Concomitant]
     Active Substance: DILTIAZEM
     Indication: HYPERTENSION
     Dosage: 240 MG
     Route: 048
  3. CALCIUM WITH VITMIN D [Concomitant]
     Dosage: 600 MG
     Route: 048
  4. CITRACAL [Concomitant]
     Active Substance: CALCIUM CITRATE
     Indication: FUNCTIONAL GASTROINTESTINAL DISORDER
     Route: 048
     Dates: start: 2012
  5. SPIRIVA [Suspect]
     Active Substance: TIOTROPIUM BROMIDE MONOHYDRATE
     Indication: LUNG DISORDER
     Dosage: 18 MCG
     Route: 055
     Dates: start: 2012
  6. LISINOPRIL. [Concomitant]
     Active Substance: LISINOPRIL
     Indication: HYPERTENSION
     Dosage: 10 MG
     Route: 048
  7. JANTOVEN [Concomitant]
     Active Substance: WARFARIN SODIUM
     Dosage: 1.4286 MG
     Route: 048
  8. PRESERVISION [Concomitant]
     Indication: EYE DISORDER
     Dosage: 2 ANZ
     Route: 048
  9. JANTOVEN [Concomitant]
     Active Substance: WARFARIN SODIUM
     Indication: CARDIAC DISORDER
     Dosage: 2.1429 MG
     Route: 048
  10. ALBUTEROL SULFATE. [Concomitant]
     Active Substance: ALBUTEROL SULFATE
     Indication: CARDIAC DISORDER
     Dosage: (INHALATION AEROSOL)
     Route: 055
     Dates: start: 20140327
  11. MULTIVITAMIN [Concomitant]
     Active Substance: VITAMINS
     Dosage: 1 ANZ
     Route: 048
  12. FUROSIMIDE [Concomitant]
     Active Substance: FUROSEMIDE
     Indication: FLUID RETENTION
     Dosage: 40 MG
     Route: 048
  13. METOPROLOL [Concomitant]
     Active Substance: METOPROLOL
     Indication: CARDIAC DISORDER
     Dosage: 100 MG
     Route: 048
  14. FINASTERIDE. [Concomitant]
     Active Substance: FINASTERIDE
     Indication: PROSTATIC DISORDER
     Dosage: 5 MG
     Route: 050

REACTIONS (2)
  - Hypoacusis [Not Recovered/Not Resolved]
  - Cerebrovascular accident [Not Recovered/Not Resolved]

NARRATIVE: CASE EVENT DATE: 2013
